FAERS Safety Report 10450825 (Version 2)
Quarter: 2014Q4

REPORT INFORMATION
  Report Type: Spontaneous
  Country: US (occurrence: US)
  Receive Date: 20140912
  Receipt Date: 20141007
  Transmission Date: 20150528
  Serious: Yes (Other)
  Sender: FDA-Public Use
  Company Number: US-ASTRAZENECA-2014SE67314

PATIENT
  Age: 17620 Day
  Sex: Female
  Weight: 68 kg

DRUGS (2)
  1. ZOLADEX [Suspect]
     Active Substance: GOSERELIN ACETATE
     Indication: OESTROGEN RECEPTOR POSITIVE BREAST CANCER
     Route: 058
     Dates: start: 20100110
  2. ZOLADEX [Suspect]
     Active Substance: GOSERELIN ACETATE
     Indication: ADJUVANT THERAPY
     Route: 058
     Dates: start: 20100110

REACTIONS (3)
  - Blood iron decreased [Unknown]
  - Vitamin D decreased [Unknown]
  - Haemorrhage [Unknown]

NARRATIVE: CASE EVENT DATE: 20140710
